FAERS Safety Report 8487342-8 (Version None)
Quarter: 2012Q3

REPORT INFORMATION
  Report Type: 
  Country: None (occurrence: None)
  Receive Date: 20120705
  Receipt Date: 20120629
  Transmission Date: 20120928
  Serious: Yes (Hospitalization, Other)
  Sender: FDA-Public Use
  Company Number: US-AMGEN-USASP2012040479

PATIENT
  Age: 61 Year
  Sex: Female

DRUGS (1)
  1. ENBREL [Suspect]
     Indication: RHEUMATOID ARTHRITIS
     Dosage: 50 MG, QWK
     Dates: start: 20060501

REACTIONS (6)
  - VARICOSE ULCERATION [None]
  - NEPHROLITHIASIS [None]
  - SCAR [None]
  - BACK PAIN [None]
  - CONTUSION [None]
  - KIDNEY INFECTION [None]
